FAERS Safety Report 10669329 (Version 4)
Quarter: 2015Q1

REPORT INFORMATION
  Report Type: Report from Study
  Country: CA (occurrence: CA)
  Receive Date: 20141222
  Receipt Date: 20150121
  Transmission Date: 20150720
  Serious: Yes (Hospitalization, Other)
  Sender: FDA-Public Use
  Company Number: CA-ABBVIE-14P-028-1323762-00

PATIENT
  Age: 69 Year
  Sex: Male
  Weight: 52.21 kg

DRUGS (1)
  1. LUPRON DEPOT [Suspect]
     Active Substance: LEUPROLIDE ACETATE
     Indication: PROSTATE CANCER
     Route: 030
     Dates: start: 20120919

REACTIONS (11)
  - Vomiting [Recovered/Resolved]
  - Nausea [Recovering/Resolving]
  - Nausea [Unknown]
  - Vomiting [Recovered/Resolved with Sequelae]
  - Intestinal obstruction [Unknown]
  - Constipation [Unknown]
  - Vomiting [Recovered/Resolved]
  - Vomiting [Not Recovered/Not Resolved]
  - Weight decreased [Not Recovered/Not Resolved]
  - Decreased appetite [Unknown]
  - Prostate cancer [Not Recovered/Not Resolved]

NARRATIVE: CASE EVENT DATE: 201411
